FAERS Safety Report 7235927-9 (Version None)
Quarter: 2011Q1

REPORT INFORMATION
  Report Type: 
  Country: None (occurrence: None)
  Receive Date: 20110120
  Receipt Date: 20110112
  Transmission Date: 20110831
  Serious: Yes (Death, Disabling)
  Sender: FDA-Public Use
  Company Number: A0801467A

PATIENT
  Age: 76 Year
  Sex: Female

DRUGS (8)
  1. LOTREL [Concomitant]
  2. CLONIDINE [Concomitant]
  3. AVANDIA [Suspect]
     Indication: DIABETES MELLITUS
     Dosage: 4MG PER DAY
     Route: 048
     Dates: start: 20011227, end: 20060513
  4. PRAVACHOL [Concomitant]
  5. ARICEPT [Concomitant]
  6. GLUCOPHAGE [Concomitant]
  7. SYNTHROID [Concomitant]
  8. LANTUS [Concomitant]

REACTIONS (1)
  - MYOCARDIAL INFARCTION [None]
